FAERS Safety Report 9282194 (Version 1)
Quarter: 2013Q2

REPORT INFORMATION
  Report Type: Spontaneous
  Country: US (occurrence: None)
  Receive Date: 20130508
  Receipt Date: 20130508
  Transmission Date: 20140414
  Serious: Yes (Life-Threatening)
  Sender: FDA-Public Use
  Company Number: None

PATIENT
  Age: 30 Year
  Sex: Male
  Weight: 72.58 kg

DRUGS (1)
  1. ONFI [Suspect]
     Indication: LENNOX-GASTAUT SYNDROME
     Route: 048

REACTIONS (7)
  - Abnormal behaviour [None]
  - Negativism [None]
  - Aggression [None]
  - Physical assault [None]
  - Anxiety [None]
  - School refusal [None]
  - Nightmare [None]
